FAERS Safety Report 5827044-7 (Version None)
Quarter: 2008Q3

REPORT INFORMATION
  Report Type: 
  Country: None (occurrence: None)
  Receive Date: 20080730
  Receipt Date: 20080724
  Transmission Date: 20090109
  Serious: Yes (Hospitalization)
  Sender: FDA-Public Use
  Company Number: A0739216A

PATIENT
  Age: 6 Year
  Sex: Male

DRUGS (7)
  1. ARIXTRA [Suspect]
     Dosage: 10MG PER DAY
     Route: 058
     Dates: start: 20080702
  2. ARGATROBAN [Concomitant]
  3. WARFARIN SODIUM [Concomitant]
  4. PREDNISONE [Concomitant]
  5. ENALAPRIL MALEATE [Concomitant]
  6. PROCARDIA [Concomitant]
  7. PEPCID [Concomitant]

REACTIONS (3)
  - FIBRIN D DIMER INCREASED [None]
  - INJECTION SITE IRRITATION [None]
  - OVERDOSE [None]
